FAERS Safety Report 9943098 (Version 2)
Quarter: 2014Q1

REPORT INFORMATION
  Report Type: Spontaneous
  Country: US (occurrence: US)
  Receive Date: 20140303
  Receipt Date: 20140303
  Transmission Date: 20141002
  Serious: Yes (Hospitalization)
  Sender: FDA-Public Use
  Company Number: US-GLAXOSMITHKLINE-A0793409A

PATIENT
  Age: 54 Year
  Sex: Female
  Weight: 95.5 kg

DRUGS (31)
  1. AVANDIA [Suspect]
     Indication: DIABETES MELLITUS
     Route: 048
     Dates: start: 199608, end: 200411
  2. LASIX [Concomitant]
  3. PREVACID [Concomitant]
  4. GEMFIBROZIL [Concomitant]
  5. LEVOXYL [Concomitant]
  6. TRILEPTAL [Concomitant]
  7. SPIRONOLACTONE [Concomitant]
  8. KLOR-CON [Concomitant]
  9. ELAVIL [Concomitant]
  10. LIPITOR [Concomitant]
  11. REGLAN [Concomitant]
  12. ENALAPRIL [Concomitant]
  13. EVISTA [Concomitant]
  14. COUMADIN [Concomitant]
  15. NITROGLYCERIN PATCH [Concomitant]
  16. NITROGLYCERIN [Concomitant]
  17. TOPROL XL [Concomitant]
  18. HUMULIN [Concomitant]
  19. HUMALOG [Concomitant]
  20. VASOTEC [Concomitant]
  21. AMITRIPTYLINE [Concomitant]
  22. ZOLOFT [Concomitant]
  23. AGGRENOX [Concomitant]
  24. POTASSIUM CHLORIDE [Concomitant]
  25. GLUCOPHAGE [Concomitant]
  26. CARDIZEM [Concomitant]
  27. PREMPRO [Concomitant]
  28. CLONAZEPAM [Concomitant]
  29. ASPIRIN [Concomitant]
  30. TESSALON [Concomitant]
  31. DIAMOX [Concomitant]

REACTIONS (9)
  - Cerebrovascular accident [Unknown]
  - Myocardial infarction [Unknown]
  - Transient ischaemic attack [Unknown]
  - Renal failure acute [Unknown]
  - Renal failure chronic [Unknown]
  - Cardiac failure congestive [Unknown]
  - Macular oedema [Unknown]
  - Retinopathy [Unknown]
  - Tibia fracture [Unknown]
